FAERS Safety Report 6311404-4 (Version None)
Quarter: 2009Q3

REPORT INFORMATION
  Report Type: 
  Country: None (occurrence: None)
  Receive Date: 20090817
  Receipt Date: 20090805
  Transmission Date: 20100115
  Serious: Yes (Other)
  Sender: FDA-Public Use
  Company Number: US-PFIZER INC-2009252891

PATIENT
  Sex: Male

DRUGS (1)
  1. ZYVOX [Suspect]
     Indication: MYCOBACTERIAL INFECTION

REACTIONS (5)
  - CONFUSIONAL STATE [None]
  - FOOT AMPUTATION [None]
  - HALLUCINATION [None]
  - NIGHTMARE [None]
  - TREMOR [None]
